FAERS Safety Report 6784663-1 (Version None)
Quarter: 2010Q2

REPORT INFORMATION
  Report Type: 
  Country: None (occurrence: None)
  Receive Date: 20100622
  Receipt Date: 20100614
  Transmission Date: 20101027
  Serious: Yes (Hospitalization)
  Sender: FDA-Public Use
  Company Number: D0067945A

PATIENT
  Age: 81 Year
  Sex: Female
  Weight: 76.5 kg

DRUGS (10)
  1. REQUIP [Suspect]
     Indication: PARKINSON'S DISEASE
     Dosage: 2MG PER DAY
     Route: 048
     Dates: start: 20070101
  2. BISOPROLOL [Suspect]
     Dosage: 7.5MG PER DAY
     Route: 048
     Dates: start: 20000101, end: 20081113
  3. PENTAERYTHRITOL TETRANITRATE [Suspect]
     Dosage: 80MG TWICE PER DAY
     Route: 048
     Dates: start: 20020101, end: 20081114
  4. HYDROCHLOROTHIAZIDE + RAMIPRIL [Suspect]
     Dosage: 2.5MG TWICE PER DAY
     Route: 048
     Dates: start: 19990101
  5. SELEGILINE [Suspect]
     Indication: PARKINSON'S DISEASE
     Dosage: 5MG TWICE PER DAY
     Route: 048
     Dates: start: 20070101
  6. ASPIRIN [Concomitant]
     Route: 048
     Dates: start: 19900101, end: 20081114
  7. MAGNETRANS FORTE [Concomitant]
     Indication: PARKINSON'S DISEASE
     Dosage: 150MG PER DAY
     Route: 048
     Dates: start: 20070101, end: 20081114
  8. AGGRENOX [Concomitant]
     Route: 065
     Dates: start: 20081111
  9. SIMVASTATIN [Concomitant]
     Dosage: 20MG PER DAY
     Route: 048
     Dates: start: 20000101
  10. GLUCOSAMINE SULFATE WITH CHONDROITIN (HERBAL) [Concomitant]
     Dosage: 700MG TWICE PER DAY
     Route: 048
     Dates: start: 20060101, end: 20081114

REACTIONS (6)
  - DIZZINESS [None]
  - HOT FLUSH [None]
  - HYPERHIDROSIS [None]
  - HYPOTENSION [None]
  - NAUSEA [None]
  - SINUS BRADYCARDIA [None]
